FAERS Safety Report 9311275 (Version 2)
Quarter: 2013Q2

REPORT INFORMATION
  Report Type: Spontaneous
  Country: US (occurrence: US)
  Receive Date: 20130528
  Receipt Date: 20130614
  Transmission Date: 20140414
  Serious: Yes (Death, Hospitalization)
  Sender: FDA-Public Use
  Company Number: US-INCYTE CORPORATION-2013IN001032

PATIENT
  Age: 69 Year
  Sex: Male
  Weight: 62.13 kg

DRUGS (3)
  1. JAKAFI [Suspect]
     Indication: MYELOFIBROSIS
     Dosage: 15 MG, BID
     Route: 048
     Dates: start: 20120201, end: 20130314
  2. JAKAFI [Suspect]
     Indication: MYELOPROLIFERATIVE DISORDER
  3. JAKAFI [Suspect]
     Indication: ANAEMIA OF CHRONIC DISEASE

REACTIONS (3)
  - Sepsis [Fatal]
  - Febrile neutropenia [None]
  - Pneumonitis [Unknown]
